FAERS Safety Report 11788239 (Version 1)
Quarter: 2015Q4

REPORT INFORMATION
  Report Type: Spontaneous
  Country: US (occurrence: US)
  Receive Date: 20151201
  Receipt Date: 20151201
  Transmission Date: 20160305
  Serious: No
  Sender: FDA-Public Use
  Company Number: US-ASTRAZENECA-2015SF18321

PATIENT
  Sex: Female

DRUGS (1)
  1. PULMICORT FLEXHALER [Suspect]
     Active Substance: BUDESONIDE
     Indication: COUGH
     Dosage: 180MCG ONE INHALATION TWICE DAILY
     Route: 055

REACTIONS (4)
  - Circumstance or information capable of leading to medication error [Unknown]
  - Device issue [Unknown]
  - Nasal congestion [Unknown]
  - Drug ineffective [Not Recovered/Not Resolved]
